FAERS Safety Report 9841570 (Version 1)
Quarter: 2013Q4

REPORT INFORMATION
  Report Type: Spontaneous
  Country: US (occurrence: None)
  Receive Date: 20131219
  Receipt Date: 20131219
  Transmission Date: 20140711
  Serious: Yes (Other)
  Sender: FDA-Public Use
  Company Number: 163-20785-12120191

PATIENT
  Age: 56 Year
  Sex: Female
  Weight: 80 kg

DRUGS (8)
  1. THALOMID [Suspect]
     Indication: PLASMA CELL MYELOMA
     Route: 048
     Dates: start: 20121015, end: 20121024
  2. VELCADE (BORTEZOMIB) (UNKNOWN) [Suspect]
     Indication: PLASMA CELL MYELOMA
     Dates: start: 20121015
  3. DEXAMETAHSONE (DEXAMETHASONE) [Concomitant]
  4. CISPLATIN (CISPLATIN) [Concomitant]
  5. ADRIAMYCIN (DOXORUBICIN) INJ. USP 10MG/5ML [Concomitant]
  6. CYCLOPHOSPHAMIDE (CYCLOPHOSPHAMIDE) [Concomitant]
  7. ETOPOSIDE (ETOPOSIDE) [Concomitant]
  8. MAOI (MONOAMINE OXIDASE INHIBITORS, NON-SELECTIVE) [Concomitant]

REACTIONS (3)
  - Atrial fibrillation [None]
  - Hypotension [None]
  - Renal failure acute [None]
